FAERS Safety Report 9309952 (Version 2)
Quarter: 2013Q3

REPORT INFORMATION
  Report Type: Spontaneous
  Country: TR (occurrence: TR)
  Receive Date: 20130527
  Receipt Date: 20130826
  Transmission Date: 20140515
  Serious: Yes (Hospitalization)
  Sender: FDA-Public Use
  Company Number: TR-AMGEN-TURSP2013036605

PATIENT
  Age: 8 Year
  Sex: Male

DRUGS (1)
  1. ENBREL [Suspect]
     Indication: JUVENILE IDIOPATHIC ARTHRITIS
     Dosage: 15 MG, WEEKLY
     Route: 058
     Dates: start: 2009, end: 201306

REACTIONS (3)
  - Pain [Recovered/Resolved]
  - Disease progression [Recovered/Resolved]
  - Asthenia [Not Recovered/Not Resolved]
